FAERS Safety Report 7837728-7 (Version None)
Quarter: 2011Q4

REPORT INFORMATION
  Report Type: 
  Country: None (occurrence: None)
  Receive Date: 20111024
  Receipt Date: 20111018
  Transmission Date: 20120403
  Serious: Yes (Hospitalization)
  Sender: FDA-Public Use
  Company Number: PHHY2011NL92160

PATIENT
  Age: 89 Year
  Weight: 89 kg

DRUGS (1)
  1. LAMISIL [Suspect]
     Indication: ONYCHOMYCOSIS
     Dosage: 250 MG, UNK
     Dates: start: 20110611, end: 20111010

REACTIONS (1)
  - ATRIAL FIBRILLATION [None]
